FAERS Safety Report 8560202-X (Version None)
Quarter: 2012Q3

REPORT INFORMATION
  Report Type: 
  Country: None (occurrence: None)
  Receive Date: 20120802
  Receipt Date: 20120723
  Transmission Date: 20120928
  Serious: Yes (Disabling)
  Sender: FDA-Public Use
  Company Number: US-009507513-1207USA013006

PATIENT

DRUGS (1)
  1. NUVARING [Suspect]
     Indication: CONTRACEPTION
     Dosage: UNK
     Route: 064
     Dates: start: 20090401

REACTIONS (13)
  - FOETAL EXPOSURE DURING PREGNANCY [None]
  - FOETAL MALNUTRITION [None]
  - MENTAL DISORDER [None]
  - PAIN [None]
  - BRAIN INJURY [None]
  - MATERNAL EXPOSURE DURING PREGNANCY [None]
  - PREGNANCY WITH CONTRACEPTIVE DEVICE [None]
  - PREMATURE BABY [None]
  - MULTIPLE INJURIES [None]
  - FOETAL PLACENTAL THROMBOSIS [None]
  - ACTIVITIES OF DAILY LIVING IMPAIRED [None]
  - CONGENITAL CENTRAL NERVOUS SYSTEM ANOMALY [None]
  - MATERNAL DRUGS AFFECTING FOETUS [None]
